FAERS Safety Report 15277658 (Version 2)
Quarter: 2018Q3

REPORT INFORMATION
  Report Type: Report from Study
  Country: US (occurrence: US)
  Receive Date: 20180814
  Receipt Date: 20180910
  Transmission Date: 20181010
  Serious: Yes (Hospitalization)
  Sender: FDA-Public Use
  Company Number: US-EXELIXIS-CABO-18015221

PATIENT
  Age: 69 Year
  Sex: Male
  Weight: 104.31 kg

DRUGS (2)
  1. CABOMETYX [Suspect]
     Active Substance: CABOZANTINIB S-MALATE
     Dosage: 60 MG, QHS
     Dates: start: 20180825
  2. CABOMETYX [Suspect]
     Active Substance: CABOZANTINIB S-MALATE
     Indication: RENAL CANCER
     Dosage: 60 MG, QHS
     Dates: start: 20180713, end: 20180727

REACTIONS (7)
  - Photopsia [Unknown]
  - Oral pain [Unknown]
  - Pruritus [Unknown]
  - Retro-orbital neoplasm [Recovering/Resolving]
  - Throat tightness [Unknown]
  - Dysphagia [Recovered/Resolved]
  - Blood pressure increased [Unknown]

NARRATIVE: CASE EVENT DATE: 201807
